FAERS Safety Report 5880187-4 (Version None)
Quarter: 2008Q3

REPORT INFORMATION
  Report Type: 
  Country: None (occurrence: None)
  Receive Date: 20080910
  Receipt Date: 20080910
  Transmission Date: 20090109
  Serious: Yes (Hospitalization)
  Sender: FDA-Public Use
  Company Number: None

PATIENT
  Sex: Male
  Weight: 63.5036 kg

DRUGS (1)
  1. ATIVAN [Suspect]
     Indication: ANXIETY
     Dosage: 1.00 MG  THREE TIMES/DAY PO
     Route: 048
     Dates: start: 20050715, end: 20080909

REACTIONS (4)
  - AGGRESSION [None]
  - DRUG DEPENDENCE [None]
  - HEAD BANGING [None]
  - HYPERHIDROSIS [None]
